FAERS Safety Report 24896332 (Version 1)
Quarter: 2025Q1

REPORT INFORMATION
  Report Type: Spontaneous
  Country: US (occurrence: US)
  Receive Date: 20250128
  Receipt Date: 20250128
  Transmission Date: 20250409
  Serious: No
  Sender: PFIZER
  Company Number: US-PFIZER INC-202500019753

PATIENT
  Age: 39 Year
  Sex: Female

DRUGS (5)
  1. PAXLOVID [Suspect]
     Active Substance: NIRMATRELVIR\RITONAVIR
     Indication: COVID-19 treatment
     Dosage: [NIRMATRELVIR 300 MG]/[RITONAVIR 100 MG]; 2X/DAY
     Dates: start: 20250115, end: 20250119
  2. PRENATAL DHA + FOLIC ACID [Concomitant]
     Dates: start: 202211
  3. CHOLINE [Concomitant]
     Active Substance: CHOLINE
     Dates: start: 202408
  4. ASPIRIN [Concomitant]
     Active Substance: ASPIRIN
     Dates: start: 202408
  5. ACEROLA VITAMIN C [Concomitant]
     Dates: start: 202410, end: 20250114

REACTIONS (3)
  - COVID-19 [Recovering/Resolving]
  - Disease recurrence [Recovering/Resolving]
  - Maternal exposure during pregnancy [Unknown]

NARRATIVE: CASE EVENT DATE: 20250122
